FAERS Safety Report 20609931 (Version 1)
Quarter: 2022Q1

REPORT INFORMATION
  Report Type: Spontaneous
  Country: CN (occurrence: CN)
  Receive Date: 20220318
  Receipt Date: 20220318
  Transmission Date: 20220424
  Serious: Yes (Other)
  Sender: FDA-Public Use
  Company Number: CN-SA-SAC20220314001998

PATIENT
  Age: 75 Year
  Sex: Male
  Weight: 100 kg

DRUGS (3)
  1. ENOXAPARIN SODIUM [Suspect]
     Active Substance: ENOXAPARIN SODIUM
     Indication: Coagulopathy
     Dosage: 6000 IU
     Route: 058
     Dates: start: 20211109, end: 20211114
  2. ENOXAPARIN SODIUM [Suspect]
     Active Substance: ENOXAPARIN SODIUM
     Indication: Coagulopathy
     Dosage: 4250 IU
     Route: 058
     Dates: start: 20211115, end: 20211121
  3. PARNAPARIN SODIUM [Suspect]
     Active Substance: PARNAPARIN SODIUM
     Dosage: 4250 IU, QD
     Dates: start: 20211115

REACTIONS (2)
  - Hepatic infection [Unknown]
  - Liver injury [Unknown]

NARRATIVE: CASE EVENT DATE: 20211206
